FAERS Safety Report 25978891 (Version 1)
Quarter: 2025Q4

REPORT INFORMATION
  Report Type: Spontaneous
  Country: US (occurrence: US)
  Receive Date: 20251030
  Receipt Date: 20251030
  Transmission Date: 20260117
  Serious: No
  Sender: MERCK SHARP & DOHME LLC
  Company Number: US-009507513-2335726

PATIENT
  Sex: Male

DRUGS (4)
  1. VORINOSTAT [Suspect]
     Active Substance: VORINOSTAT
     Indication: Acute myeloid leukaemia recurrent
     Route: 048
  2. cytarabine (+) hydrocortisone (+) methotrexate [Concomitant]
     Indication: Acute myeloid leukaemia recurrent
     Dosage: ALTERNATING IT TRIPLES OF CYTARABINE (+) HYDROCORTISONE (+) METHOTREXATE, WITH IT DOUBLES OF ONLY...
  3. DECITABINE [Concomitant]
     Active Substance: DECITABINE
     Indication: Acute myeloid leukaemia recurrent
  4. fludarabine, cytarabine and filgrastim (DV-?FLAG) [Concomitant]
     Indication: Acute myeloid leukaemia recurrent

REACTIONS (1)
  - Product use in unapproved indication [Unknown]
